FAERS Safety Report 4874423-0 (Version None)
Quarter: 2005Q4

REPORT INFORMATION
  Report Type: 
  Country: None (occurrence: None)
  Receive Date: 20051201
  Receipt Date: 20050816
  Transmission Date: 20060501
  Serious: No
  Sender: FDA-Public Use
  Company Number: 2005PV001053

PATIENT
  Age: 88 Year
  Sex: Male

DRUGS (7)
  1. BYETTA [Suspect]
     Dosage: SEE IMAGE
     Route: 058
     Dates: start: 20050701, end: 20050701
  2. BYETTA [Suspect]
     Dosage: SEE IMAGE
     Route: 058
     Dates: start: 20050701, end: 20050801
  3. BYETTA [Suspect]
     Dosage: SEE IMAGE
     Route: 058
     Dates: start: 20050801
  4. COREG [Concomitant]
  5. ENALAPRIL [Concomitant]
  6. ASPIRIN [Concomitant]
  7. LASIX [Concomitant]

REACTIONS (2)
  - DYSPNOEA [None]
  - NAUSEA [None]
